FAERS Safety Report 25551049 (Version 1)
Quarter: 2025Q3

REPORT INFORMATION
  Report Type: Spontaneous
  Country: US (occurrence: US)
  Receive Date: 20250714
  Receipt Date: 20250714
  Transmission Date: 20251020
  Serious: No
  Sender: INTRA-CELLULAR THERAPIES
  Company Number: US-INTRA-CELLULAR THERAPIES, INC.-2025ICT00512

PATIENT
  Age: 26 Year
  Sex: Female

DRUGS (3)
  1. CAPLYTA [Suspect]
     Active Substance: LUMATEPERONE
     Indication: Bipolar disorder
     Dosage: 42 MG, 1X/DAY
     Dates: start: 20250331, end: 20250331
  2. LAMICTAL [Concomitant]
     Active Substance: LAMOTRIGINE
  3. MELATONIN [Concomitant]
     Active Substance: MELATONIN

REACTIONS (9)
  - Muscular weakness [Unknown]
  - Hypoaesthesia [Unknown]
  - Influenza like illness [Unknown]
  - Feeling abnormal [Unknown]
  - Feeling hot [Unknown]
  - Insomnia [Recovered/Resolved]
  - Nausea [Unknown]
  - Dry mouth [Unknown]
  - Headache [Unknown]

NARRATIVE: CASE EVENT DATE: 20250331
